FAERS Safety Report 15077158 (Version 1)
Quarter: 2018Q2

REPORT INFORMATION
  Report Type: Spontaneous
  Country: US (occurrence: US)
  Receive Date: 20180607
  Receipt Date: 20180607
  Transmission Date: 20180711
  Serious: Yes (Death)
  Sender: FDA-Public Use
  Company Number: None

PATIENT
  Sex: Female

DRUGS (10)
  1. PREDNISONE. [Suspect]
     Active Substance: PREDNISONE
     Indication: RENAL TRANSPLANT
     Route: 048
     Dates: start: 20150903
  2. VALSARTAN. [Concomitant]
     Active Substance: VALSARTAN
  3. SODIUM [Concomitant]
     Active Substance: SODIUM
  4. TACROLIMUS. [Suspect]
     Active Substance: TACROLIMUS
     Indication: RENAL TRANSPLANT
     Route: 048
     Dates: start: 20150811
  5. CENTRUM [Concomitant]
     Active Substance: VITAMINS
  6. TRIAMCINOLON [Concomitant]
  7. ASPIRIN. [Concomitant]
     Active Substance: ASPIRIN
  8. METOPROLOL. [Concomitant]
     Active Substance: METOPROLOL
  9. SPIRONOLACT [Concomitant]
     Active Substance: SPIRONOLACTONE
  10. TYLENOL [Concomitant]
     Active Substance: ACETAMINOPHEN

REACTIONS (1)
  - Death [None]
